FAERS Safety Report 4485637-6 (Version None)
Quarter: 2004Q4

REPORT INFORMATION
  Report Type: 
  Country: None (occurrence: None)
  Receive Date: 20041026
  Receipt Date: 20041015
  Transmission Date: 20050328
  Serious: Yes (Death, Life-Threatening, Hospitalization, Disabling)
  Sender: FDA-Public Use
  Company Number: US-MERCK-0410USA02415

PATIENT
  Age: 82 Year
  Sex: Male

DRUGS (8)
  1. VIOXX [Suspect]
     Indication: ROTATOR CUFF SYNDROME
     Route: 048
     Dates: start: 20020901, end: 20040830
  2. COUMADIN [Concomitant]
     Route: 065
  3. ASPIRIN [Concomitant]
     Route: 065
  4. ALLOPURINOL MSD [Concomitant]
     Route: 048
  5. VERAPAMIL MSD LP [Concomitant]
     Route: 048
  6. COZAAR [Concomitant]
     Route: 048
  7. LASIX [Concomitant]
     Route: 065
  8. DIGOXIN [Concomitant]
     Route: 065

REACTIONS (6)
  - BACK DISORDER [None]
  - CARDIAC ARREST [None]
  - CEREBRAL INFARCTION [None]
  - HAEMORRHAGIC STROKE [None]
  - SPINAL CORD HAEMORRHAGE [None]
  - THROMBOTIC STROKE [None]
